FAERS Safety Report 12315754 (Version 16)
Quarter: 2019Q4

REPORT INFORMATION
  Report Type: Report from Study
  Country: GT (occurrence: GT)
  Receive Date: 20160428
  Receipt Date: 20191107
  Transmission Date: 20200122
  Serious: Yes (Hospitalization, Disabling, Other)
  Sender: FDA-Public Use
  Company Number: PHHY2016GT055689

PATIENT
  Age: 80 Year
  Sex: Female

DRUGS (19)
  1. SANDOSTATIN LAR DEPOT [Suspect]
     Active Substance: OCTREOTIDE ACETATE
     Dosage: 40 MG, UNK
     Route: 065
  2. LANZOPRAZOL [Concomitant]
     Active Substance: LANSOPRAZOLE
     Indication: PRODUCT USED FOR UNKNOWN INDICATION
     Dosage: UNK
     Route: 065
  3. DORZOLAMIDE [Concomitant]
     Active Substance: DORZOLAMIDE
     Indication: PRODUCT USED FOR UNKNOWN INDICATION
     Dosage: 20 MG, UNK
     Route: 065
  4. JANUVIA [Concomitant]
     Active Substance: SITAGLIPTIN PHOSPHATE
     Indication: PRODUCT USED FOR UNKNOWN INDICATION
     Dosage: UNK
     Route: 065
  5. SANDOSTATIN LAR DEPOT [Suspect]
     Active Substance: OCTREOTIDE ACETATE
     Indication: ACROMEGALY
     Dosage: 20 MG, UNK
     Route: 065
     Dates: start: 20170508
  6. SANDOSTATIN LAR DEPOT [Suspect]
     Active Substance: OCTREOTIDE ACETATE
     Indication: BRAIN NEOPLASM
     Dosage: UNK UNK, QMO
     Route: 030
     Dates: start: 2010
  7. SANDOSTATIN LAR DEPOT [Suspect]
     Active Substance: OCTREOTIDE ACETATE
     Dosage: 20 MG, QMO
     Route: 065
     Dates: end: 20181001
  8. DICLOFENAC [Concomitant]
     Active Substance: DICLOFENAC
     Indication: PRODUCT USED FOR UNKNOWN INDICATION
     Dosage: UNK
     Route: 065
  9. NATURAL TEARS [Concomitant]
     Active Substance: POLYVINYL ALCOHOL\POVIDONE
     Indication: PRODUCT USED FOR UNKNOWN INDICATION
     Dosage: UNK
     Route: 065
  10. SANDOSTATIN LAR DEPOT [Suspect]
     Active Substance: OCTREOTIDE ACETATE
     Dosage: 20 MG, QMO
     Route: 065
  11. MICARDIS [Concomitant]
     Active Substance: TELMISARTAN
     Indication: PRODUCT USED FOR UNKNOWN INDICATION
     Dosage: UNK
     Route: 065
  12. TIMOLOL. [Concomitant]
     Active Substance: TIMOLOL
     Indication: PRODUCT USED FOR UNKNOWN INDICATION
     Dosage: 0.5 %, UNK
     Route: 065
  13. TELMISARTAN. [Concomitant]
     Active Substance: TELMISARTAN
     Indication: PRODUCT USED FOR UNKNOWN INDICATION
     Dosage: UNK
     Route: 065
  14. JANUVIA [Concomitant]
     Active Substance: SITAGLIPTIN PHOSPHATE
     Dosage: 1 DF (100 MG), QD
     Route: 048
  15. SANDOSTATIN LAR DEPOT [Suspect]
     Active Substance: OCTREOTIDE ACETATE
     Dosage: 1 UNIT, QMO
     Route: 065
  16. SUCRALFATO [Concomitant]
     Active Substance: SUCRALFATE
     Indication: PRODUCT USED FOR UNKNOWN INDICATION
     Dosage: UNK
     Route: 065
  17. PLENDIL [Concomitant]
     Active Substance: FELODIPINE
     Indication: PRODUCT USED FOR UNKNOWN INDICATION
     Dosage: UNK
     Route: 065
  18. CARVEDILOL. [Concomitant]
     Active Substance: CARVEDILOL
     Indication: PRODUCT USED FOR UNKNOWN INDICATION
     Dosage: UNK
     Route: 065
  19. METFORMIN [Concomitant]
     Active Substance: METFORMIN HYDROCHLORIDE
     Indication: PRODUCT USED FOR UNKNOWN INDICATION
     Dosage: UNK
     Route: 065

REACTIONS (41)
  - Loss of consciousness [Unknown]
  - Dizziness [Recovered/Resolved]
  - Scratch [Unknown]
  - Blood glucose decreased [Unknown]
  - Tongue discomfort [Unknown]
  - Dysphagia [Unknown]
  - Vomiting [Recovered/Resolved]
  - Limb discomfort [Not Recovered/Not Resolved]
  - Ear disorder [Unknown]
  - Fall [Unknown]
  - Blood glucose increased [Unknown]
  - Tremor [Unknown]
  - Nasal congestion [Unknown]
  - Limb injury [Unknown]
  - Oropharyngeal pain [Unknown]
  - Cough [Unknown]
  - Gait disturbance [Not Recovered/Not Resolved]
  - Mobility decreased [Unknown]
  - Muscular weakness [Unknown]
  - Blood magnesium decreased [Recovered/Resolved]
  - Disorientation [Unknown]
  - Oropharyngeal discomfort [Unknown]
  - Pain in extremity [Recovered/Resolved]
  - Abdominal discomfort [Unknown]
  - Bone disorder [Unknown]
  - Pain [Unknown]
  - Blood potassium decreased [Recovered/Resolved]
  - Blindness [Not Recovered/Not Resolved]
  - Glaucoma [Unknown]
  - Productive cough [Unknown]
  - Blood pressure decreased [Unknown]
  - Anal incontinence [Unknown]
  - Syncope [Recovered/Resolved]
  - Blood sodium decreased [Recovered/Resolved]
  - Speech disorder [Unknown]
  - Feeling abnormal [Unknown]
  - Malaise [Unknown]
  - Dysphonia [Unknown]
  - Oral discomfort [Unknown]
  - Urinary incontinence [Unknown]
  - Blood pressure increased [Unknown]
